FAERS Safety Report 23042270 (Version 3)
Quarter: 2023Q4

REPORT INFORMATION
  Report Type: Report from Study
  Country: DE (occurrence: DE)
  Receive Date: 20231008
  Receipt Date: 20231025
  Transmission Date: 20240110
  Serious: Yes (Hospitalization)
  Sender: FDA-Public Use
  Company Number: DE-SA-2019SA268276

PATIENT
  Age: 66 Year
  Sex: Male
  Weight: 110 kg

DRUGS (1)
  1. DUPILUMAB [Suspect]
     Active Substance: DUPILUMAB
     Indication: Dermatitis atopic
     Dosage: UNK, QOW
     Route: 058
     Dates: start: 20190122

REACTIONS (4)
  - Postoperative wound infection [Recovered/Resolved]
  - Hip arthroplasty [Recovered/Resolved]
  - Impaired healing [Recovered/Resolved]
  - Wound infection [Recovered/Resolved]

NARRATIVE: CASE EVENT DATE: 20190510
